FAERS Safety Report 15350419 (Version 2)
Quarter: 2018Q3

REPORT INFORMATION
  Report Type: Report from Study
  Country: CA (occurrence: CA)
  Receive Date: 20180905
  Receipt Date: 20180918
  Transmission Date: 20181010
  Serious: Yes (Hospitalization, Other)
  Sender: FDA-Public Use
  Company Number: CA-ROCHE-2178974

PATIENT
  Age: 49 Year
  Sex: Male
  Weight: 86.4 kg

DRUGS (10)
  1. ACYCLOVIR. [Concomitant]
     Active Substance: ACYCLOVIR
  2. PREGABALIN. [Concomitant]
     Active Substance: PREGABALIN
  3. ENOXAPARIN [Concomitant]
     Active Substance: ENOXAPARIN
  4. RITUXAN [Suspect]
     Active Substance: RITUXIMAB
     Indication: NEUROMYELITIS OPTICA SPECTRUM DISORDER
     Route: 042
     Dates: start: 20180423, end: 20180507
  5. VITAMIN C [Concomitant]
     Active Substance: ASCORBIC ACID
  6. BACLOFEN. [Concomitant]
     Active Substance: BACLOFEN
  7. PANTOPRAZOLE [Concomitant]
     Active Substance: PANTOPRAZOLE
  8. CLONAZEPAM. [Concomitant]
     Active Substance: CLONAZEPAM
  9. CELLCEPT [Suspect]
     Active Substance: MYCOPHENOLATE MOFETIL\MYCOPHENOLATE MOFETIL HYDROCHLORIDE
     Indication: PRODUCT USED FOR UNKNOWN INDICATION
     Route: 065
  10. PREDNISONE. [Concomitant]
     Active Substance: PREDNISONE

REACTIONS (20)
  - Musculoskeletal stiffness [Unknown]
  - Urinary tract infection [Unknown]
  - Weight decreased [Unknown]
  - Muscle spasms [Unknown]
  - Drug resistance [Unknown]
  - Walking aid user [Unknown]
  - Muscular weakness [Recovering/Resolving]
  - Urinary retention [Unknown]
  - Asthenia [Not Recovered/Not Resolved]
  - Paraesthesia [Unknown]
  - Gait disturbance [Unknown]
  - Arthralgia [Unknown]
  - Tendon pain [Unknown]
  - Pain in extremity [Unknown]
  - Hypoaesthesia [Unknown]
  - Alanine aminotransferase increased [Unknown]
  - Joint stiffness [Unknown]
  - Muscle spasticity [Unknown]
  - Diplegia [Recovering/Resolving]
  - Neuromyelitis optica spectrum disorder [Unknown]

NARRATIVE: CASE EVENT DATE: 201805
